FAERS Safety Report 8061187-5 (Version None)
Quarter: 2012Q1

REPORT INFORMATION
  Report Type: 
  Country: None (occurrence: None)
  Receive Date: 20120120
  Receipt Date: 20120110
  Transmission Date: 20120608
  Serious: Yes (Life-Threatening, Hospitalization)
  Sender: FDA-Public Use
  Company Number: US-GILEAD-2011-0043345

PATIENT
  Sex: Male

DRUGS (2)
  1. ALLOPURINOL [Concomitant]
     Indication: GOUT
     Dosage: UNK
     Dates: start: 20110405
  2. EMTRICITABINE/RILPIVIRINE/TENOFOVIR DF [Suspect]
     Indication: HIV INFECTION
     Dosage: 1 DF, QD
     Route: 048

REACTIONS (2)
  - PULMONARY EMBOLISM [None]
  - DEEP VEIN THROMBOSIS [None]
